FAERS Safety Report 11883507 (Version 2)
Quarter: 2016Q1

REPORT INFORMATION
  Report Type: Spontaneous
  Country: IE (occurrence: IE)
  Receive Date: 20151231
  Receipt Date: 20160106
  Transmission Date: 20160526
  Serious: Yes (Other)
  Sender: FDA-Public Use
  Company Number: PHHY2015IE170425

PATIENT
  Age: 31 Year
  Sex: Male

DRUGS (1)
  1. DABRAFENIB [Suspect]
     Active Substance: DABRAFENIB
     Indication: METASTATIC MALIGNANT MELANOMA
     Dosage: UNK
     Route: 048
     Dates: start: 201107

REACTIONS (6)
  - Impaired driving ability [Unknown]
  - Pain [Unknown]
  - Gait disturbance [Unknown]
  - Disease progression [Unknown]
  - Palmoplantar keratoderma [Recovered/Resolved]
  - Therapeutic response decreased [Unknown]
